FAERS Safety Report 19168226 (Version 1)
Quarter: 2021Q2

REPORT INFORMATION
  Report Type: Spontaneous
  Country: CZ (occurrence: CZ)
  Receive Date: 20210422
  Receipt Date: 20210422
  Transmission Date: 20210717
  Serious: Yes (Other)
  Sender: FDA-Public Use
  Company Number: CZ-MYLANLABS-2021M1023013

PATIENT
  Sex: Female

DRUGS (3)
  1. PACLITAXEL. [Suspect]
     Active Substance: PACLITAXEL
     Indication: METASTASES TO CENTRAL NERVOUS SYSTEM
     Dosage: UNK
     Dates: start: 2020
  2. RAMUCIRUMAB [Suspect]
     Active Substance: RAMUCIRUMAB
  3. OXALIPLATIN. [Suspect]
     Active Substance: OXALIPLATIN
     Indication: OESOPHAGEAL CARCINOMA
     Dosage: UNK
     Dates: start: 2018

REACTIONS (5)
  - Neuropathy peripheral [Unknown]
  - Anaemia [Unknown]
  - Spinal fracture [Unknown]
  - Neutropenia [Unknown]
  - Fall [Unknown]

NARRATIVE: CASE EVENT DATE: 2018
